FAERS Safety Report 7377883-9 (Version None)
Quarter: 2011Q1

REPORT INFORMATION
  Report Type: 
  Country: None (occurrence: None)
  Receive Date: 20110328
  Receipt Date: 20110315
  Transmission Date: 20110831
  Serious: Yes (Other)
  Sender: FDA-Public Use
  Company Number: DE-ROCHE-767722

PATIENT
  Sex: Female

DRUGS (2)
  1. PEGASYS [Suspect]
     Dosage: SUBSTITUTION THERAPY
     Route: 065
     Dates: start: 20110215
  2. PEGASYS [Suspect]
     Indication: HEPATITIS C
     Dosage: SUBSTITUTION THERAPY
     Route: 065
     Dates: end: 20110101

REACTIONS (5)
  - BLOOD ALKALINE PHOSPHATASE INCREASED [None]
  - GAMMA-GLUTAMYLTRANSFERASE INCREASED [None]
  - BLOOD BILIRUBIN INCREASED [None]
  - PROTHROMBIN TIME PROLONGED [None]
  - ANXIETY [None]
